FAERS Safety Report 5112618-1 (Version None)
Quarter: 2006Q3

REPORT INFORMATION
  Report Type: 
  Country: None (occurrence: None)
  Receive Date: 20060922
  Receipt Date: 20060913
  Transmission Date: 20061208
  Serious: Yes (Other)
  Sender: FDA-Public Use
  Company Number: US-JNJFOC-20060903083

PATIENT
  Sex: Female
  Weight: 79.83 kg

DRUGS (4)
  1. REMICADE [Suspect]
     Indication: RHEUMATOID ARTHRITIS
     Route: 042
  2. METHOTREXATE [Concomitant]
  3. SYNTHROID [Concomitant]
  4. PREMARIN [Concomitant]

REACTIONS (2)
  - BILE DUCT CANCER [None]
  - HEPATIC CYST [None]
